FAERS Safety Report 23891696 (Version 2)
Quarter: 2024Q3

REPORT INFORMATION
  Report Type: Spontaneous
  Country: US (occurrence: US)
  Receive Date: 20240524
  Receipt Date: 20240717
  Transmission Date: 20241016
  Serious: No
  Sender: AMGEN
  Company Number: US-AMGEN-USASP2024101623

PATIENT
  Age: 65 Year
  Sex: Male

DRUGS (5)
  1. TAVNEOS [Suspect]
     Active Substance: AVACOPAN
     Indication: Pulmonary vasculitis
     Dosage: 30 MILLIGRAM, QD WITH FOOD
     Route: 048
     Dates: start: 20240101, end: 202405
  2. TAVNEOS [Suspect]
     Active Substance: AVACOPAN
     Indication: Arteritis
  3. TAVNEOS [Suspect]
     Active Substance: AVACOPAN
     Indication: Eosinophilia
  4. TAVNEOS [Suspect]
     Active Substance: AVACOPAN
     Indication: Off label use
  5. TAVNEOS [Suspect]
     Active Substance: AVACOPAN
     Indication: Eosinophilic granulomatosis with polyangiitis

REACTIONS (4)
  - Gastrointestinal disorder [Unknown]
  - Malaise [Unknown]
  - Drug ineffective [Unknown]
  - Off label use [Unknown]

NARRATIVE: CASE EVENT DATE: 20240101
